FAERS Safety Report 5225032-5 (Version None)
Quarter: 2007Q1

REPORT INFORMATION
  Report Type: 
  Country: None (occurrence: None)
  Receive Date: 20070131
  Receipt Date: 20070129
  Transmission Date: 20070707
  Serious: Yes (Other)
  Sender: FDA-Public Use
  Company Number: US-GLAXOSMITHKLINE-A0637407A

PATIENT
  Age: 75 Year
  Sex: Male

DRUGS (15)
  1. ADVAIR DISKUS 100/50 [Suspect]
     Indication: ASTHMA
     Dosage: 1PUFF TWICE PER DAY
     Route: 055
  2. FLOMAX [Concomitant]
  3. SYNTHROID [Concomitant]
  4. LEVAQUIN [Concomitant]
  5. ASTELIN [Concomitant]
  6. ENABLEX [Concomitant]
  7. NEXIUM [Concomitant]
  8. PRIMIDONE [Concomitant]
  9. XOPENEX [Concomitant]
  10. ALLERGAN [Concomitant]
  11. RESTASIS [Concomitant]
  12. COUMADIN [Concomitant]
  13. AMBIEN [Concomitant]
  14. UNKNOWN MEDICATION [Concomitant]
  15. WARFARIN SODIUM [Concomitant]

REACTIONS (1)
  - ATRIAL FLUTTER [None]
